FAERS Safety Report 13458303 (Version 1)
Quarter: 2017Q2

REPORT INFORMATION
  Report Type: Spontaneous
  Country: PK (occurrence: PK)
  Receive Date: 20170419
  Receipt Date: 20170419
  Transmission Date: 20170830
  Serious: Yes (Other)
  Sender: FDA-Public Use
  Company Number: PK-SA-2017SA068693

PATIENT
  Age: 50 Year
  Sex: Male

DRUGS (1)
  1. AMARYL [Suspect]
     Active Substance: GLIMEPIRIDE
     Indication: HYPERGLYCAEMIA
     Route: 048
     Dates: start: 201611

REACTIONS (2)
  - Hyperglycaemia [Not Recovered/Not Resolved]
  - Asphyxia [Not Recovered/Not Resolved]
